FAERS Safety Report 9214415 (Version 2)
Quarter: 2013Q2

REPORT INFORMATION
  Report Type: Spontaneous
  Country: US (occurrence: US)
  Receive Date: 20130405
  Receipt Date: 20130501
  Transmission Date: 20140414
  Serious: Yes (Other)
  Sender: FDA-Public Use
  Company Number: US-TEVA-395510USA

PATIENT
  Age: 80 Year
  Sex: Female
  Weight: 49.94 kg

DRUGS (1)
  1. ETHAMBUTOL [Suspect]
     Indication: LUNG INFECTION
     Dosage: 1000 MILLIGRAM DAILY; 1000MG DAILY FOR 60DAYS
     Dates: start: 20110726, end: 201111

REACTIONS (6)
  - Overdose [Unknown]
  - Toxicity to various agents [Unknown]
  - Toxic optic neuropathy [Recovering/Resolving]
  - Scotoma [Unknown]
  - Deafness [Not Recovered/Not Resolved]
  - Basal cell carcinoma [Unknown]
